FAERS Safety Report 14590251 (Version 1)
Quarter: 2018Q1

REPORT INFORMATION
  Report Type: Spontaneous
  Country: US (occurrence: US)
  Receive Date: 20180302
  Receipt Date: 20180302
  Transmission Date: 20180509
  Serious: No
  Sender: FDA-Public Use
  Company Number: US-PFIZER INC-2018083339

PATIENT
  Sex: Female

DRUGS (2)
  1. RIZATRIPTAN. [Suspect]
     Active Substance: RIZATRIPTAN
     Dosage: UNK
  2. ELETRIPTAN HBR [Suspect]
     Active Substance: ELETRIPTAN HYDROBROMIDE
     Dosage: UNK

REACTIONS (1)
  - Drug ineffective [Unknown]
